FAERS Safety Report 5206636-2 (Version None)
Quarter: 2006Q4

REPORT INFORMATION
  Report Type: 
  Country: None (occurrence: None)
  Receive Date: 20061026
  Receipt Date: 20060701
  Transmission Date: 20070319
  Serious: No
  Sender: FDA-Public Use
  Company Number: 2006082940

PATIENT
  Age: 53 Year
  Sex: Female
  Weight: 83.0083 kg

DRUGS (6)
  1. LYRICA [Suspect]
     Indication: BACK DISORDER
     Dosage: 150 MG (50 MG, 3 IN 1 D)
     Dates: start: 20060601, end: 20060626
  2. HYDROCODONE BITARTRATE [Suspect]
     Indication: BACK DISORDER
     Dates: end: 20060701
  3. PREMARIN [Concomitant]
  4. WELLBUTRIN [Concomitant]
  5. LIPITOR [Concomitant]
  6. AMBIEN [Concomitant]

REACTIONS (4)
  - DRUG INTERACTION [None]
  - JOINT INJECTION [None]
  - RASH [None]
  - SKIN BURNING SENSATION [None]
